FAERS Safety Report 5718996-4 (Version None)
Quarter: 2008Q2

REPORT INFORMATION
  Report Type: 
  Country: None (occurrence: None)
  Receive Date: 20080425
  Receipt Date: 20080417
  Transmission Date: 20081010
  Serious: Yes (Hospitalization, Other)
  Sender: FDA-Public Use
  Company Number: PHHY2008BR06040

PATIENT
  Age: 52 Year
  Sex: Female
  Weight: 78 kg

DRUGS (15)
  1. EXFORGE [Suspect]
     Indication: HYPERTENSION
     Dosage: UNK, UNK
     Route: 048
     Dates: end: 20071222
  2. SERTRALINE HYDROCHLORIDE [Concomitant]
     Indication: DEPRESSION
     Dosage: UNK, ONCE/SINGLE
     Route: 048
  3. CAPTOPRIL [Concomitant]
     Indication: HYPERTENSION
     Dosage: 50 MG, BID
     Route: 048
     Dates: start: 20080101
  4. AMITRIPTYLINE HCL [Concomitant]
     Indication: DEPRESSION
     Dosage: 25 MG, BID
     Route: 048
     Dates: start: 20060101
  5. TOFRANIL [Concomitant]
     Indication: DEPRESSION
     Dosage: 75 MG, ONCE/SINGLE
     Route: 048
     Dates: start: 20060101
  6. ANAFRANIL [Concomitant]
     Indication: DEPRESSION
     Dosage: 25 MG, BID
     Route: 048
  7. SUSTRATE [Concomitant]
     Indication: CHEST PAIN
     Route: 060
     Dates: start: 20070101
  8. APRESOLINE [Concomitant]
     Indication: HYPERTENSION
     Dosage: 25 MG, BID
     Route: 048
  9. OMEPRAZOLE [Concomitant]
     Indication: STOMACH DISCOMFORT
     Dosage: 20 MG, ONCE/SINGLE
     Route: 048
     Dates: start: 20070801
  10. ALDOMET [Concomitant]
     Indication: HYPERTENSION
     Dosage: 500 MG, BID
     Route: 048
  11. ATENOLOL [Concomitant]
     Indication: HYPERTENSION
     Dosage: 100 MG, ONCE/SINGLE
     Route: 048
  12. FUROSEMIDE [Concomitant]
     Indication: HYPERTENSION
     Dosage: 40 MG, BID
     Route: 048
  13. ALDACTONE [Concomitant]
     Indication: HYPERTENSION
     Dosage: 25 MG, ONCE/SINGLE
     Route: 048
  14. PURAN T4 [Concomitant]
     Indication: THYROID DISORDER
     Dosage: 225 MG, UNK
     Route: 048
  15. SIMVASTATIN [Concomitant]
     Indication: BLOOD CHOLESTEROL
     Dosage: 40 MG, UNK
     Route: 048

REACTIONS (10)
  - CARDIOMEGALY [None]
  - CHEST PAIN [None]
  - COUGH [None]
  - EYELID OEDEMA [None]
  - HYPERTENSION [None]
  - JOINT SWELLING [None]
  - OEDEMA PERIPHERAL [None]
  - PAIN IN EXTREMITY [None]
  - PULMONARY OEDEMA [None]
  - SENSATION OF HEAVINESS [None]
